FAERS Safety Report 20790019 (Version 1)
Quarter: 2022Q2

REPORT INFORMATION
  Report Type: Spontaneous
  Country: US (occurrence: US)
  Receive Date: 20220505
  Receipt Date: 20220505
  Transmission Date: 20220721
  Serious: Yes (Death, Other)
  Sender: FDA-Public Use
  Company Number: US-AMGEN-USASP2022074283

PATIENT
  Age: 61 Year
  Sex: Male

DRUGS (4)
  1. FILGRASTIM [Suspect]
     Active Substance: FILGRASTIM
     Indication: Pancytopenia
     Dosage: UNK
     Route: 065
  2. FILGRASTIM [Suspect]
     Active Substance: FILGRASTIM
     Indication: Off label use
  3. CYCLOPHOSPHAMIDE [Concomitant]
     Active Substance: CYCLOPHOSPHAMIDE
     Indication: Squamous cell carcinoma of head and neck
     Dosage: 600 MILLIGRAM/SQ. METER (FOR 3 DAYS)
  4. FLUDARABINE [Concomitant]
     Active Substance: FLUDARABINE PHOSPHATE
     Indication: Squamous cell carcinoma of head and neck
     Dosage: 30 MILLIGRAM/SQ. METER (FOR 3 OR 4 DAYS)

REACTIONS (2)
  - Squamous cell carcinoma of head and neck [Fatal]
  - Off label use [Unknown]
